FAERS Safety Report 8613467-X (Version None)
Quarter: 2012Q3

REPORT INFORMATION
  Report Type: 
  Country: None (occurrence: None)
  Receive Date: 20120823
  Receipt Date: 20120815
  Transmission Date: 20120928
  Serious: Yes (Other)
  Sender: FDA-Public Use
  Company Number: GB-ABBOTT-12P-167-0969322-00

PATIENT
  Age: 40 Year
  Sex: Female
  Weight: 63.2 kg

DRUGS (1)
  1. HUMIRA [Suspect]
     Indication: CROHN'S DISEASE
     Route: 058
     Dates: start: 20120209

REACTIONS (2)
  - SKIN OEDEMA [None]
  - RASH ERYTHEMATOUS [None]
